FAERS Safety Report 9797220 (Version 2)
Quarter: 2014Q1

REPORT INFORMATION
  Report Type: Spontaneous
  Country: JP (occurrence: None)
  Receive Date: 20131230
  Receipt Date: 20140122
  Transmission Date: 20141002
  Serious: Yes (Death)
  Sender: FDA-Public Use
  Company Number: JP-20130124

PATIENT
  Age: 70 Year
  Sex: Male

DRUGS (3)
  1. LIPIODOL ULTRA FLUID [Suspect]
     Indication: THERAPEUTIC EMBOLISATION
     Dosage: 4 ML (4 ML, 1 IN 1 D), INTRA-ARTERIAL
     Route: 013
     Dates: start: 20110705, end: 20110705
  2. FARMORUBICIN (EPIRUBICIN) (EPIRUBICIN) [Concomitant]
  3. GELPART (GELATIN) (GELATIN) [Concomitant]

REACTIONS (5)
  - Liver abscess [None]
  - Clostridial infection [None]
  - Haemolysis [None]
  - Acidosis [None]
  - Hyperkalaemia [None]
